FAERS Safety Report 11109123 (Version 1)
Quarter: 2015Q2

REPORT INFORMATION
  Report Type: Spontaneous
  Country: US (occurrence: None)
  Receive Date: 20150511
  Receipt Date: 20150511
  Transmission Date: 20150821
  Serious: Yes (Hospitalization, Other)
  Sender: FDA-Public Use
  Company Number: DEP_02783_2015

PATIENT
  Age: 19 Year
  Sex: Male

DRUGS (1)
  1. NUCYNTA ER [Suspect]
     Active Substance: TAPENTADOL HYDROCHLORIDE
     Indication: PRODUCT USED FOR UNKNOWN INDICATION
     Dates: start: 20141130

REACTIONS (6)
  - Hallucination [None]
  - Drug abuse [None]
  - Intentional overdose [None]
  - Heart rate increased [None]
  - Fear [None]
  - Blood pressure increased [None]

NARRATIVE: CASE EVENT DATE: 20141130
